FAERS Safety Report 20714477 (Version 1)
Quarter: 2022Q2

REPORT INFORMATION
  Report Type: Spontaneous
  Country: US (occurrence: None)
  Receive Date: 20220415
  Receipt Date: 20220415
  Transmission Date: 20220721
  Serious: No
  Sender: FDA-Public Use
  Company Number: None

PATIENT
  Age: 64 Year
  Sex: Female

DRUGS (15)
  1. AMBRISENTAN [Suspect]
     Active Substance: AMBRISENTAN
     Indication: Pulmonary hypertension
     Dosage: FREQUENCY : DAILY;?
     Route: 048
  2. PILOCARPINE HYDROCHLORIDE [Concomitant]
     Active Substance: PILOCARPINE HYDROCHLORIDE
  3. LATANOPROST [Concomitant]
     Active Substance: LATANOPROST
  4. OMEPRAZOLE [Concomitant]
     Active Substance: OMEPRAZOLE
  5. HYDROCODONE BITARTRATE/AC [Concomitant]
  6. AMLODIPINE BESYLATE [Concomitant]
     Active Substance: AMLODIPINE BESYLATE
  7. GABAPENTIN [Concomitant]
     Active Substance: GABAPENTIN
  8. METOPROLOL SUCCINATE [Concomitant]
     Active Substance: METOPROLOL SUCCINATE
  9. HYDROXYCHLOROQUINE SULFATE [Concomitant]
     Active Substance: HYDROXYCHLOROQUINE SULFATE
  10. RESTASIS [Concomitant]
     Active Substance: CYCLOSPORINE
  11. FOLIC ACID [Concomitant]
     Active Substance: FOLIC ACID
  12. VITAMIN B-COMPLEX [Concomitant]
     Active Substance: DEXPANTHENOL\NIACINAMIDE\PYRIDOXINE HYDROCHLORIDE\RIBOFLAVIN 5^-PHOSPHATE SODIUM\THIAMINE HYDROCHLOR
  13. LASIX [Concomitant]
     Active Substance: FUROSEMIDE
  14. AMBRISENTAN [Concomitant]
     Active Substance: AMBRISENTAN
  15. METHOTREXATE [Concomitant]
     Active Substance: METHOTREXATE

REACTIONS (1)
  - Rash [None]

NARRATIVE: CASE EVENT DATE: 20220414
